FAERS Safety Report 7957878-4 (Version None)
Quarter: 2011Q4

REPORT INFORMATION
  Report Type: 
  Country: None (occurrence: None)
  Receive Date: 20111201
  Receipt Date: 20111117
  Transmission Date: 20120403
  Serious: Yes (Hospitalization)
  Sender: FDA-Public Use
  Company Number: 1000019810

PATIENT
  Age: 87 Year
  Sex: Female

DRUGS (12)
  1. ESCITALOPRAM OXALATE [Suspect]
     Dosage: 15 MG (15 MG, 1 IN 1 D),ORAL, ORAL
     Route: 048
     Dates: start: 20110121
  2. ESCITALOPRAM OXALATE [Suspect]
     Dosage: 15 MG (15 MG, 1 IN 1 D),ORAL, ORAL
     Route: 048
     Dates: end: 20110114
  3. SIMVASTATIN [Suspect]
     Dates: start: 20110121
  4. SIMVASTATIN [Suspect]
     Dates: end: 20110114
  5. OMEPRAZOLE [Suspect]
     Dosage: (1 IN 1 D)
     Dates: end: 20110114
  6. MEMANTINE HYDROCHLORIDE [Suspect]
     Indication: DEMENTIA ALZHEIMER'S TYPE
     Dosage: 20 MG (20 MG, 1 IN 1 D),ORAL, ORAL
     Route: 048
     Dates: end: 20110114
  7. MEMANTINE HYDROCHLORIDE [Suspect]
     Indication: DEMENTIA ALZHEIMER'S TYPE
     Dosage: 20 MG (20 MG, 1 IN 1 D),ORAL, ORAL
     Route: 048
     Dates: start: 20110121
  8. AUGMENTIN '125' [Suspect]
     Indication: LUNG DISORDER
     Dosage: 2 GRAM (2 GM, 1 IN 1 D),ORAL
     Route: 048
     Dates: start: 20110110, end: 20110114
  9. EXELON [Suspect]
     Dosage: (4.6 MILLIGRAM, TRANSDERMAL) (1 IN 1 D),TRANSDERMAL, TRANSDERMAL
     Route: 062
     Dates: start: 20110121
  10. EXELON [Suspect]
     Dosage: (4.6 MILLIGRAM, TRANSDERMAL) (1 IN 1 D),TRANSDERMAL, TRANSDERMAL
     Route: 062
     Dates: end: 20110114
  11. ALLOPURINOL [Suspect]
     Dates: end: 20110114
  12. LAGORAN (ISOSORBIDE DINITRATE) (ISOSORBIDE DINITRATE) [Concomitant]

REACTIONS (18)
  - ATRIAL FIBRILLATION [None]
  - ABNORMAL BEHAVIOUR [None]
  - PRODUCTIVE COUGH [None]
  - CONFUSIONAL STATE [None]
  - HYPERNATRAEMIA [None]
  - C-REACTIVE PROTEIN INCREASED [None]
  - DECREASED APPETITE [None]
  - HEART RATE INCREASED [None]
  - THROMBOCYTOPENIA [None]
  - DEHYDRATION [None]
  - DIET REFUSAL [None]
  - PSYCHOMOTOR HYPERACTIVITY [None]
  - LUNG DISORDER [None]
  - CYTOLYTIC HEPATITIS [None]
  - BEDRIDDEN [None]
  - DELUSION [None]
  - LEUKOCYTOSIS [None]
  - PULMONARY EMBOLISM [None]
